FAERS Safety Report 16132246 (Version 1)
Quarter: 2019Q1

REPORT INFORMATION
  Report Type: Spontaneous
  Country: FR (occurrence: FR)
  Receive Date: 20190329
  Receipt Date: 20190329
  Transmission Date: 20190418
  Serious: Yes (Death, Other)
  Sender: FDA-Public Use
  Company Number: FR-ASTELLAS-2019US013233

PATIENT
  Age: 59 Year
  Sex: Male

DRUGS (2)
  1. TEICOPLANINE MYLAN [Concomitant]
     Active Substance: TEICOPLANIN
     Indication: PRODUCT USED FOR UNKNOWN INDICATION
     Route: 065
  2. ISAVUCONAZOLE [Suspect]
     Active Substance: ISAVUCONAZOLE
     Indication: MUCORMYCOSIS
     Route: 065

REACTIONS (5)
  - Osteomyelitis [Fatal]
  - Ear infection [Fatal]
  - Subcutaneous abscess [Unknown]
  - Mucormycosis [Fatal]
  - Vertebral artery thrombosis [Unknown]
